FAERS Safety Report 10924170 (Version 1)
Quarter: 2015Q1

REPORT INFORMATION
  Report Type: Spontaneous
  Country: US (occurrence: None)
  Receive Date: 20150316
  Receipt Date: 20150316
  Transmission Date: 20150721
  Serious: Yes (Hospitalization)
  Sender: FDA-Public Use
  Company Number: None

PATIENT
  Age: 63 Year
  Sex: Male
  Weight: 104.7 kg

DRUGS (1)
  1. PREDNISONE. [Suspect]
     Active Substance: PREDNISONE
     Indication: BRONCHITIS
     Dates: start: 20150123, end: 20150129

REACTIONS (3)
  - Sleep disorder [None]
  - Emotional distress [None]
  - Nightmare [None]

NARRATIVE: CASE EVENT DATE: 20150131
